FAERS Safety Report 9034526 (Version 1)
Quarter: 2013Q1

REPORT INFORMATION
  Report Type: Spontaneous
  Country: US (occurrence: None)
  Receive Date: 20130116
  Receipt Date: 20130116
  Transmission Date: 20140127
  Serious: No
  Sender: FDA-Public Use
  Company Number: None

PATIENT
  Age: 44 Year
  Sex: Male

DRUGS (15)
  1. CEFAZOLIN [Suspect]
     Dates: start: 20051208, end: 20051208
  2. OXCARBAZEPINE [Suspect]
     Dates: start: 20050131, end: 20060106
  3. SEVOFLURANE [Suspect]
     Dates: start: 20051208, end: 20051208
  4. TRILEPTAL [Suspect]
     Route: 048
     Dates: start: 20050131, end: 20060106
  5. ANZEMENT [Concomitant]
  6. ZEMURON [Concomitant]
  7. SUCCINYLCHOLINE [Concomitant]
  8. VERSED [Concomitant]
  9. FENTANYL [Concomitant]
  10. ACIPHEX [Concomitant]
  11. VITAMIN B COMPLEX [Concomitant]
  12. VITAMIN E [Concomitant]
  13. GINSENG [Concomitant]
  14. SAW PALMETTO [Concomitant]
  15. GLUCOSAMINE/CHONDROITIN [Concomitant]

REACTIONS (16)
  - Drug-induced liver injury [None]
  - Nausea [None]
  - Jaundice [None]
  - Alcohol use [None]
  - Headache [None]
  - Chromaturia [None]
  - Abdominal pain [None]
  - Vomiting [None]
  - Aspartate aminotransferase increased [None]
  - Alanine aminotransferase increased [None]
  - Blood alkaline phosphatase increased [None]
  - Blood bilirubin increased [None]
  - Gallbladder disorder [None]
  - Pruritus [None]
  - Faeces discoloured [None]
  - Hepatocellular injury [None]
